FAERS Safety Report 20345812 (Version 1)
Quarter: 2022Q1

REPORT INFORMATION
  Report Type: Spontaneous
  Country: US (occurrence: None)
  Receive Date: 20220115
  Receipt Date: 20220115
  Transmission Date: 20220423
  Serious: No
  Sender: FDA-Public Use
  Company Number: None

PATIENT
  Age: 69 Year
  Sex: Female

DRUGS (1)
  1. SUTENT [Suspect]
     Active Substance: SUNITINIB MALATE
     Dosage: OTHER FREQUENCY : N/A;?
     Route: 048
     Dates: start: 201601

REACTIONS (3)
  - Eye swelling [None]
  - Ocular hyperaemia [None]
  - Eyelid pain [None]

NARRATIVE: CASE EVENT DATE: 20210601
